FAERS Safety Report 6906995-6 (Version None)
Quarter: 2010Q3

REPORT INFORMATION
  Report Type: 
  Country: None (occurrence: None)
  Receive Date: 20100804
  Receipt Date: 20071107
  Transmission Date: 20110219
  Serious: No
  Sender: FDA-Public Use
  Company Number: US-PFIZER INC-2007016621

PATIENT
  Sex: Male
  Weight: 90.72 kg

DRUGS (2)
  1. NARDIL [Suspect]
     Indication: AGORAPHOBIA
     Dates: start: 19810101
  2. NARDIL [Suspect]
     Indication: PANIC DISORDER

REACTIONS (1)
  - DRUG INEFFECTIVE [None]
